FAERS Safety Report 4559789-3 (Version None)
Quarter: 2005Q1

REPORT INFORMATION
  Report Type: 
  Country: None (occurrence: None)
  Receive Date: 20050107
  Receipt Date: 20041116
  Transmission Date: 20050727
  Serious: Yes (Hospitalization)
  Sender: FDA-Public Use
  Company Number: 239567

PATIENT
  Sex: Female

DRUGS (8)
  1. NOVOLOG [Suspect]
     Indication: INSULIN-REQUIRING TYPE II DIABETES MELLITUS
     Dosage: BASAL RATE: 25 IU QD, SUBCUTAN.-PUMP
     Route: 058
     Dates: start: 20020101
  2. ACETYLSALICYLIC ACID SRT [Concomitant]
  3. COREG [Concomitant]
  4. DIOVANE (VALSARTAN) [Concomitant]
  5. NITROPASTE (GLYCERYL TRINITRATE) [Concomitant]
  6. PRAVACHOL [Concomitant]
  7. PREVACID [Concomitant]
  8. INSULIN PUMP (NOS) [Concomitant]

REACTIONS (5)
  - ANGIONEUROTIC OEDEMA [None]
  - DYSPNOEA [None]
  - INJECTION SITE SWELLING [None]
  - PRURITUS [None]
  - RASH [None]
